FAERS Safety Report 9452786 (Version 3)
Quarter: 2013Q3

REPORT INFORMATION
  Report Type: Report from Study
  Country: AU (occurrence: AU)
  Receive Date: 20130812
  Receipt Date: 20130815
  Transmission Date: 20140515
  Serious: Yes (Hospitalization)
  Sender: FDA-Public Use
  Company Number: PHHY2013AU085879

PATIENT
  Sex: Male

DRUGS (1)
  1. CLOZARIL [Suspect]
     Dosage: 300 MG
     Dates: start: 20110701, end: 20130716

REACTIONS (3)
  - Quality of life decreased [Unknown]
  - Blood count abnormal [Unknown]
  - Drug ineffective [Unknown]
